FAERS Safety Report 13697939 (Version 1)
Quarter: 2017Q2

REPORT INFORMATION
  Report Type: Report from Study
  Country: JP (occurrence: JP)
  Receive Date: 20170628
  Receipt Date: 20170628
  Transmission Date: 20170830
  Serious: Yes (Other)
  Sender: FDA-Public Use
  Company Number: JP-TEVA-781238ROM

PATIENT
  Age: 62 Year
  Sex: Male

DRUGS (5)
  1. SODIUM THIOSULFATE [Concomitant]
     Active Substance: SODIUM THIOSULFATE
     Dosage: 1G/M2
     Route: 042
  2. SODIUM CHLORIDE. [Concomitant]
     Active Substance: SODIUM CHLORIDE
     Dosage: 100UNITS/ML
     Route: 050
  3. CISPLATIN. [Suspect]
     Active Substance: CISPLATIN
     Indication: LIP AND/OR ORAL CAVITY CANCER
     Dosage: 5MG/M2/DAY FOR 5 WEEKS
     Route: 013
  4. DOCETAXEL. [Suspect]
     Active Substance: DOCETAXEL
     Indication: LIP AND/OR ORAL CAVITY CANCER
     Dosage: 10MG/M2/DAY FOR 1 WEEK
     Route: 013
  5. PREDNISOLONE. [Concomitant]
     Active Substance: PREDNISOLONE
     Dosage: 10MG
     Route: 050

REACTIONS (2)
  - Trigeminal palsy [Recovered/Resolved]
  - Facial paralysis [Recovered/Resolved]
